FAERS Safety Report 13915882 (Version 1)
Quarter: 2017Q3

REPORT INFORMATION
  Report Type: Spontaneous
  Country: US (occurrence: None)
  Receive Date: 20170827
  Receipt Date: 20170827
  Transmission Date: 20171127
  Serious: Yes (Hospitalization)
  Sender: FDA-Public Use
  Company Number: None

PATIENT
  Age: 64 Year
  Sex: Male

DRUGS (1)
  1. ENOXAPARIN (GENERIC) [Suspect]
     Active Substance: ENOXAPARIN
     Indication: DEEP VEIN THROMBOSIS
     Dates: start: 20170812, end: 20170813

REACTIONS (4)
  - Haemoglobin decreased [None]
  - Haematochezia [None]
  - Treatment noncompliance [None]
  - Gastric haemorrhage [None]

NARRATIVE: CASE EVENT DATE: 20170813
